FAERS Safety Report 5442410-X (Version None)
Quarter: 2007Q3

REPORT INFORMATION
  Report Type: 
  Country: None (occurrence: None)
  Receive Date: 20070904
  Receipt Date: 20070823
  Transmission Date: 20080115
  Serious: Yes (Hospitalization)
  Sender: FDA-Public Use
  Company Number: JP-PFIZER INC-2007067993

PATIENT
  Sex: Female
  Weight: 56.8 kg

DRUGS (8)
  1. DOXAZOSIN MESYLATE [Suspect]
     Indication: HYPERTENSION
     Route: 048
     Dates: start: 20070629, end: 20070803
  2. VALSARTAN [Concomitant]
  3. LANDEL [Concomitant]
  4. EPADEL [Concomitant]
  5. JUVELA NICOTINATE [Concomitant]
  6. BENFOTIAMINE [Concomitant]
  7. PYRIDOXINE HYDROCHLORIDE [Concomitant]
     Dates: start: 20050101
  8. CYANOCOBALAMIN [Concomitant]
     Route: 048

REACTIONS (1)
  - ERYTHEMA [None]
